FAERS Safety Report 19082217 (Version 1)
Quarter: 2021Q1

REPORT INFORMATION
  Report Type: Spontaneous
  Country: US (occurrence: US)
  Receive Date: 20210331
  Receipt Date: 20210331
  Transmission Date: 20210420
  Serious: Yes (Hospitalization)
  Sender: FDA-Public Use
  Company Number: None

PATIENT
  Age: 73 Year
  Sex: Male

DRUGS (1)
  1. SIMVASTATIN (SIMVASTATIN 20MG TAB) [Suspect]
     Active Substance: SIMVASTATIN
     Dates: start: 20090116, end: 20201119

REACTIONS (1)
  - Myalgia [None]

NARRATIVE: CASE EVENT DATE: 20201119
